FAERS Safety Report 5875910-9 (Version None)
Quarter: 2008Q3

REPORT INFORMATION
  Report Type: 
  Country: None (occurrence: None)
  Receive Date: 20080910
  Receipt Date: 20080902
  Transmission Date: 20090109
  Serious: Yes (Hospitalization, Other)
  Sender: FDA-Public Use
  Company Number: PHHY2008JP17405

PATIENT
  Age: 54 Year
  Sex: Female

DRUGS (8)
  1. TEGRETOL [Suspect]
     Indication: EPILEPSY
     Dosage: 300 MG/DAY
     Route: 048
  2. TEGRETOL [Suspect]
     Dosage: 100 MG
     Route: 048
     Dates: start: 20080527, end: 20080529
  3. TEGRETOL [Suspect]
     Dosage: 200 MG
     Route: 048
     Dates: start: 20080530, end: 20080730
  4. TEGRETOL [Suspect]
     Dosage: 300 MG
     Route: 048
     Dates: start: 20080731, end: 20080801
  5. TEGRETOL [Suspect]
     Dosage: 200 MG
     Route: 048
     Dates: start: 20080802, end: 20080802
  6. TEGRETOL [Suspect]
     Dosage: 400 MG
     Route: 048
     Dates: start: 20080803, end: 20080803
  7. TEGRETOL [Suspect]
     Dosage: 200 MG
     Route: 048
     Dates: start: 20080804
  8. DOGMATYL [Concomitant]
     Dosage: 200 MG
     Route: 048
     Dates: start: 20080527

REACTIONS (3)
  - DIZZINESS [None]
  - DRUG LEVEL INCREASED [None]
  - WRONG DRUG ADMINISTERED [None]
